FAERS Safety Report 5893354-0 (Version None)
Quarter: 2008Q3

REPORT INFORMATION
  Report Type: 
  Country: None (occurrence: None)
  Receive Date: 20080922
  Receipt Date: 20080922
  Transmission Date: 20090109
  Serious: Yes (Other)
  Sender: FDA-Public Use
  Company Number: None

PATIENT
  Age: 83 Year
  Sex: Male
  Weight: 64.8644 kg

DRUGS (1)
  1. METOPROLOL SUCCINATE ER 50 MG 50 MG ETHEX [Suspect]
     Indication: CARDIAC FAILURE
     Dosage: 50 MG 150 MG P. DAY
     Dates: start: 20080806, end: 20080820

REACTIONS (2)
  - DIZZINESS [None]
  - PHARMACEUTICAL PRODUCT COMPLAINT [None]
